FAERS Safety Report 9674574 (Version 2)
Quarter: 2013Q4

REPORT INFORMATION
  Report Type: Spontaneous
  Country: IT (occurrence: IT)
  Receive Date: 20131107
  Receipt Date: 20131107
  Transmission Date: 20140711
  Serious: Yes (Other)
  Sender: FDA-Public Use
  Company Number: IT-ACCORD-019929

PATIENT
  Age: 32 Year
  Sex: Female
  Weight: 50 kg

DRUGS (3)
  1. TRAMADOL [Suspect]
     Indication: ABDOMINAL PAIN
     Dosage: INCREASED THE DOSES UP TO 30 ML OF TRAMADOL 100 MG/ML FOR AT LEAST 2 YEARS
     Route: 048
  2. DIAZEPAM [Concomitant]
     Indication: DEPRESSION
     Dosage: EARLIER AS NEEDED + WITH PINCHES OF TRAMADOL WITHOUT EXCEEDING 8 MG/DAY
     Route: 048
  3. CITALOPRAM [Concomitant]
     Indication: DEPRESSION
     Dosage: 20 MG/DAY FOR OVER 10 YEARS.1 TABLET IN THE MORNING

REACTIONS (19)
  - Drug abuse [Unknown]
  - Constipation [Unknown]
  - Urinary retention [Unknown]
  - Fatigue [Unknown]
  - Decreased appetite [Unknown]
  - Insomnia [Unknown]
  - Tachycardia [Unknown]
  - Depression [Unknown]
  - Anxiety [Unknown]
  - Nervousness [Unknown]
  - Abdominal pain [Recovered/Resolved]
  - Agitation [Unknown]
  - Asthenia [Unknown]
  - Headache [Unknown]
  - Nausea [Recovered/Resolved]
  - Weight decreased [Unknown]
  - Cold sweat [Unknown]
  - Tremor [Unknown]
  - Flushing [Unknown]
